FAERS Safety Report 19074609 (Version 2)
Quarter: 2021Q2

REPORT INFORMATION
  Report Type: Report from Study
  Country: IT (occurrence: IT)
  Receive Date: 20210330
  Receipt Date: 20210519
  Transmission Date: 20210717
  Serious: Yes (Death, Other)
  Sender: FDA-Public Use
  Company Number: IT-PFIZER INC-2021317307

PATIENT
  Age: 45 Year
  Sex: Female

DRUGS (2)
  1. HALCION [Suspect]
     Active Substance: TRIAZOLAM
     Dosage: 4 DF (TOTAL)
     Route: 048
     Dates: start: 20210210, end: 20210210
  2. EN [Suspect]
     Active Substance: DELORAZEPAM
     Dosage: 20 ML (TOTAL)
     Route: 048
     Dates: start: 20210210, end: 20210210

REACTIONS (4)
  - Drug abuse [Fatal]
  - Bradyphrenia [Fatal]
  - Tachycardia [Fatal]
  - Hypokinesia [Fatal]

NARRATIVE: CASE EVENT DATE: 20210210
